FAERS Safety Report 25398565 (Version 1)
Quarter: 2025Q2

REPORT INFORMATION
  Report Type: Spontaneous
  Country: BR (occurrence: BR)
  Receive Date: 20250604
  Receipt Date: 20250604
  Transmission Date: 20250717
  Serious: Yes (Other)
  Sender: NOVARTIS
  Company Number: BR-002147023-NVSC2025BR087889

PATIENT

DRUGS (1)
  1. DIOVAN [Suspect]
     Active Substance: VALSARTAN
     Indication: Product used for unknown indication
     Route: 065

REACTIONS (5)
  - Chronic myeloid leukaemia [Unknown]
  - Marrow hyperplasia [Unknown]
  - Bone marrow polymorphonuclear leukocyte count increased [Unknown]
  - Dysmegakaryopoiesis [Unknown]
  - Osteopenia [Unknown]
